FAERS Safety Report 5206269-8 (Version None)
Quarter: 2006Q4

REPORT INFORMATION
  Report Type: 
  Country: None (occurrence: None)
  Receive Date: 20061026
  Receipt Date: 20060905
  Transmission Date: 20070319
  Serious: Yes (Other)
  Sender: FDA-Public Use
  Company Number: 2006108074

PATIENT
  Age: 49 Year
  Sex: Male

DRUGS (2)
  1. LYRICA [Suspect]
     Indication: NEUROMA
     Dosage: 150 MG (50 MG, 3 IN 1 D)
     Dates: start: 20060701
  2. ULTRAM [Concomitant]

REACTIONS (7)
  - BREAKTHROUGH PAIN [None]
  - DISTURBANCE IN ATTENTION [None]
  - DRY MOUTH [None]
  - HEADACHE [None]
  - MEMORY IMPAIRMENT [None]
  - VISION BLURRED [None]
  - WEIGHT INCREASED [None]
